FAERS Safety Report 13973722 (Version 1)
Quarter: 2017Q3

REPORT INFORMATION
  Report Type: Spontaneous
  Country: US (occurrence: US)
  Receive Date: 20170914
  Receipt Date: 20170914
  Transmission Date: 20171128
  Serious: Yes (Other)
  Sender: FDA-Public Use
  Company Number: US-SUPERNUS PHARMACEUTICALS, INC.-2017SUP00247

PATIENT
  Age: 57 Year
  Sex: Male

DRUGS (4)
  1. OXTELLAR XR [Suspect]
     Active Substance: OXCARBAZEPINE
     Dosage: 600 MG, 1X/DAY
     Dates: start: 201708
  2. OXTELLAR XR [Suspect]
     Active Substance: OXCARBAZEPINE
     Indication: EPILEPSY
     Dosage: 1200 MG, 1X/DAY
     Dates: start: 201708, end: 201708
  3. OXCARBAZEPINE. [Suspect]
     Active Substance: OXCARBAZEPINE
     Indication: EPILEPSY
     Dosage: UNK
  4. ^A LOT^ OF MEDICATIONS (UNSPECIFIED) [Concomitant]

REACTIONS (5)
  - Upper limb fracture [Unknown]
  - Balance disorder [Unknown]
  - Fall [Unknown]
  - Tremor [Unknown]
  - Gait disturbance [Unknown]

NARRATIVE: CASE EVENT DATE: 201708
